FAERS Safety Report 11866748 (Version 2)
Quarter: 2016Q1

REPORT INFORMATION
  Report Type: Spontaneous
  Country: IT (occurrence: IT)
  Receive Date: 20151224
  Receipt Date: 20160314
  Transmission Date: 20160526
  Serious: Yes (Other)
  Sender: FDA-Public Use
  Company Number: IT-AUROBINDO-AUR-APL-2015-11781

PATIENT
  Age: 51 Year
  Sex: Female

DRUGS (2)
  1. CITALOPRAM [Suspect]
     Active Substance: CITALOPRAM HYDROBROMIDE
     Indication: INSOMNIA
     Dosage: 20 GTT DAILY
     Route: 048
  2. LENDORMIN [Concomitant]
     Active Substance: BROTIZOLAM
     Indication: INSOMNIA
     Route: 065

REACTIONS (4)
  - Confusional state [Unknown]
  - Asthenia [Unknown]
  - Dry mouth [Unknown]
  - Drug abuse [Unknown]

NARRATIVE: CASE EVENT DATE: 20151113
